FAERS Safety Report 9388763 (Version 2)
Quarter: 2013Q3

REPORT INFORMATION
  Report Type: Spontaneous
  Country: TW (occurrence: TW)
  Receive Date: 20130708
  Receipt Date: 20130709
  Transmission Date: 20140515
  Serious: Yes (Hospitalization, Other)
  Sender: FDA-Public Use
  Company Number: TW-GLAXOSMITHKLINE-B0905421A

PATIENT
  Age: 44 Year
  Sex: Female
  Weight: 77.2 kg

DRUGS (2)
  1. REVOLADE [Suspect]
     Indication: PRODUCT USED FOR UNKNOWN INDICATION
     Dosage: 25MG PER DAY
     Route: 065
     Dates: start: 20130530, end: 20130620
  2. REVOLADE [Suspect]
     Indication: PRODUCT USED FOR UNKNOWN INDICATION
     Dosage: 50MG PER DAY
     Route: 065
     Dates: start: 20130621, end: 20130629

REACTIONS (3)
  - Vaginal haemorrhage [Recovered/Resolved]
  - Anaemia [Recovered/Resolved]
  - Haemoglobin decreased [Recovered/Resolved]
